FAERS Safety Report 23872321 (Version 2)
Quarter: 2024Q3

REPORT INFORMATION
  Report Type: Spontaneous
  Country: US (occurrence: US)
  Receive Date: 20240520
  Receipt Date: 20240718
  Transmission Date: 20241016
  Serious: Yes (Other)
  Sender: BRISTOL MYERS SQUIBB
  Company Number: US-BRISTOL-MYERS SQUIBB COMPANY-2024-077398

PATIENT
  Age: 66 Year
  Sex: Female
  Weight: 107.5 kg

DRUGS (1)
  1. REVLIMID [Suspect]
     Active Substance: LENALIDOMIDE
     Indication: Plasma cell myeloma
     Dosage: 21 DAYS ON 7 DAYS OFF, 3 WEEKS ON 1 WEEK OFF
     Route: 048

REACTIONS (3)
  - Urinary tract infection [Unknown]
  - Central nervous system lesion [Not Recovered/Not Resolved]
  - Malignant melanoma [Unknown]
